FAERS Safety Report 8221751-7 (Version None)
Quarter: 2012Q1

REPORT INFORMATION
  Report Type: 
  Country: None (occurrence: None)
  Receive Date: 20120320
  Receipt Date: 20120320
  Transmission Date: 20120608
  Serious: Yes (Hospitalization, Other)
  Sender: FDA-Public Use
  Company Number: None

PATIENT
  Age: 80 Year
  Sex: Female
  Weight: 72.5 kg

DRUGS (8)
  1. NORVASC [Concomitant]
     Route: 048
  2. MEMANTINE -NAMENDA [Concomitant]
     Route: 048
  3. LISINOPRIL [Concomitant]
     Route: 048
  4. PRAVASTATIN [Concomitant]
     Route: 048
  5. VENLAFAXINE [Concomitant]
     Route: 048
  6. ATENOLOL [Concomitant]
     Route: 048
  7. ARICEPT [Concomitant]
     Route: 048
  8. NITROFURANTOIN [Suspect]
     Dosage: 100.0 MG
     Route: 048
     Dates: start: 20110901, end: 20120218

REACTIONS (2)
  - AUTOIMMUNE HEPATITIS [None]
  - LIVER INJURY [None]
